FAERS Safety Report 21131187 (Version 1)
Quarter: 2022Q3

REPORT INFORMATION
  Report Type: Report from Study
  Country: FR (occurrence: FR)
  Receive Date: 20220726
  Receipt Date: 20220726
  Transmission Date: 20221027
  Serious: Yes (Other)
  Sender: FDA-Public Use
  Company Number: FR-BRISTOL-MYERS SQUIBB COMPANY-BMS-2022-004667

PATIENT
  Age: 59 Year

DRUGS (3)
  1. NIVOLUMAB [Suspect]
     Active Substance: NIVOLUMAB
     Indication: Non-small cell lung cancer
     Dosage: 240 MILLIGRAM, Q2WK
     Route: 042
     Dates: start: 20210419, end: 20220110
  2. NIVOLUMAB [Suspect]
     Active Substance: NIVOLUMAB
     Route: 065
     Dates: start: 20220207
  3. VOLUVEN [HETASTARCH;SODIUM CHLORIDE] [Concomitant]
     Indication: Product used for unknown indication
     Route: 065

REACTIONS (5)
  - Bradycardia [Unknown]
  - Asthenia [Recovered/Resolved]
  - Myalgia [Recovered/Resolved]
  - Presyncope [Recovered/Resolved]
  - Dehydration [Unknown]

NARRATIVE: CASE EVENT DATE: 20220110
